FAERS Safety Report 12664272 (Version 2)
Quarter: 2016Q3

REPORT INFORMATION
  Report Type: Report from Study
  Country: US (occurrence: US)
  Receive Date: 20160818
  Receipt Date: 20160829
  Transmission Date: 20161109
  Serious: Yes (Hospitalization)
  Sender: FDA-Public Use
  Company Number: US-ACTELION-A-US2016-140620

PATIENT
  Age: 12 Week
  Sex: Male

DRUGS (5)
  1. TRACLEER [Suspect]
     Active Substance: BOSENTAN
     Dosage: 3 MG, BID
     Route: 048
     Dates: start: 20160804
  2. TRACLEER [Suspect]
     Active Substance: BOSENTAN
     Indication: PULMONARY ARTERIAL HYPERTENSION
     Dosage: 6 MG, BID
     Route: 048
     Dates: start: 20160717, end: 20160803
  3. SILDENAFIL. [Concomitant]
     Active Substance: SILDENAFIL
     Indication: PULMONARY ARTERIAL HYPERTENSION
  4. TADALAFIL [Concomitant]
     Active Substance: TADALAFIL
     Dosage: 3 MG, QD
     Route: 048
     Dates: start: 20160812
  5. TRACLEER [Suspect]
     Active Substance: BOSENTAN
     Dosage: 2.1 MG, BID
     Route: 048
     Dates: start: 20160706, end: 20160716

REACTIONS (4)
  - Liver function test increased [Recovering/Resolving]
  - Swelling [Recovering/Resolving]
  - Hyperhidrosis [Recovering/Resolving]
  - Fluid retention [Recovering/Resolving]
